FAERS Safety Report 13170370 (Version 2)
Quarter: 2018Q2

REPORT INFORMATION
  Report Type: Report from Study
  Country: US (occurrence: US)
  Receive Date: 20170131
  Receipt Date: 20180611
  Transmission Date: 20180711
  Serious: Yes (Other)
  Sender: FDA-Public Use
  Company Number: US-EISAI MEDICAL RESEARCH-EC-2014-001855

PATIENT
  Age: 78 Year
  Sex: Female
  Weight: 78 kg

DRUGS (7)
  1. HYDROCHLOROTHIAZIDE. [Concomitant]
     Active Substance: HYDROCHLOROTHIAZIDE
     Route: 048
     Dates: start: 20130613
  2. LISINOPRIL. [Concomitant]
     Active Substance: LISINOPRIL
     Route: 048
     Dates: start: 20130613
  3. ASPIRIN. [Concomitant]
     Active Substance: ASPIRIN
     Route: 048
     Dates: start: 20130613
  4. LORCASERIN [Suspect]
     Active Substance: LORCASERIN HYDROCHLORIDE
     Indication: WEIGHT CONTROL
     Route: 048
     Dates: start: 20141020, end: 20141023
  5. XARELTO [Concomitant]
     Active Substance: RIVAROXABAN
     Route: 048
     Dates: start: 20130613
  6. LORCASERIN [Suspect]
     Active Substance: LORCASERIN HYDROCHLORIDE
     Route: 048
     Dates: start: 20141024, end: 20141026
  7. DILTIAZEM. [Concomitant]
     Active Substance: DILTIAZEM
     Route: 048
     Dates: start: 2013

REACTIONS (2)
  - Serotonin syndrome [Recovered/Resolved]
  - Aortic valve incompetence [Not Recovered/Not Resolved]

NARRATIVE: CASE EVENT DATE: 20141020
